FAERS Safety Report 10066759 (Version 8)
Quarter: 2014Q3

REPORT INFORMATION
  Report Type: Spontaneous
  Country: US (occurrence: US)
  Receive Date: 20140408
  Receipt Date: 20140722
  Transmission Date: 20150326
  Serious: Yes (Death, Hospitalization, Other)
  Sender: FDA-Public Use
  Company Number: PHHY2014US027566

PATIENT
  Sex: Male
  Weight: 55 kg

DRUGS (18)
  1. BACLOFEN. [Suspect]
     Active Substance: BACLOFEN
     Dosage: 30 MG, QID
     Route: 048
  2. AMBIEN [Suspect]
     Active Substance: ZOLPIDEM TARTRATE
     Dosage: 1 DF, UNK
     Route: 048
  3. LIORESAL [Suspect]
     Active Substance: BACLOFEN
     Dosage: 650.8 UG, PER DAY
     Route: 037
  4. OXYBUTYNIN [Suspect]
     Active Substance: OXYBUTYNIN
     Dosage: 10 MG, BID
     Route: 048
  5. LIORESAL [Suspect]
     Active Substance: BACLOFEN
     Dosage: 650 UG, UNK
     Route: 037
  6. LYRICA [Suspect]
     Active Substance: PREGABALIN
     Dosage: 1 DF, Q8H
     Route: 048
  7. XANAX [Suspect]
     Active Substance: ALPRAZOLAM
     Dosage: 2 MG, BID
     Route: 048
  8. LIORESAL [Suspect]
     Active Substance: BACLOFEN
     Indication: MUSCLE SPASTICITY
     Dosage: 814 UG, PER DAY
     Route: 037
  9. HYDROXYZINE HYDROCHLORIDE. [Suspect]
     Active Substance: HYDROXYZINE HYDROCHLORIDE
     Dosage: 10 MG, QID (AS NEEDED)
     Route: 048
  10. MIRALAX [Suspect]
     Active Substance: POLYETHYLENE GLYCOL 3350
     Dosage: 17 MG, DAILY
     Route: 048
  11. BISACODYL. [Suspect]
     Active Substance: BISACODYL
     Dosage: 10 MG, DAILY (AS NEEDED)
  12. MIRTAZEPINE TEVA [Suspect]
     Active Substance: MIRTAZAPINE
     Dosage: 30 MG, QD (AT BEDTIME)
     Route: 048
  13. LIORESAL [Suspect]
     Active Substance: BACLOFEN
     Dosage: 839.6 MCG/ DAY
     Route: 037
  14. BACLOFEN. [Suspect]
     Active Substance: BACLOFEN
     Dosage: 10 MG, TID
     Route: 048
  15. BACLOFEN. [Suspect]
     Active Substance: BACLOFEN
     Dosage: 20 MG, TID
     Route: 048
  16. GABAPENTIN. [Suspect]
     Active Substance: GABAPENTIN
     Dosage: 1200 MG, TID
     Route: 048
  17. DIAZEPAM. [Suspect]
     Active Substance: DIAZEPAM
     Dosage: 10 MG, Q4H
     Route: 048
  18. CLONAZEPAM. [Suspect]
     Active Substance: CLONAZEPAM
     Dosage: 0.5 MG, TID (EVERY EIGHT HOURS/THREE TIMES/DAY)
     Route: 048

REACTIONS (18)
  - Underdose [Fatal]
  - Spontaneous penile erection [Fatal]
  - Muscle spasms [Fatal]
  - Incorrect route of drug administration [Fatal]
  - Drug withdrawal syndrome [Fatal]
  - Haemorrhoids [Fatal]
  - Anal spasm [Fatal]
  - Muscle spasticity [Fatal]
  - Dry mouth [Fatal]
  - Wound dehiscence [Fatal]
  - Implant site erosion [Fatal]
  - Infection [Fatal]
  - Anal sphincter hypertonia [Fatal]
  - Priapism [Fatal]
  - Pruritus [Fatal]
  - Overdose [Fatal]
  - Tremor [Fatal]
  - Pain in extremity [Fatal]
